FAERS Safety Report 20698304 (Version 1)
Quarter: 2022Q2

REPORT INFORMATION
  Report Type: Spontaneous
  Country: US (occurrence: US)
  Receive Date: 20220412
  Receipt Date: 20220412
  Transmission Date: 20220721
  Serious: Yes (Other)
  Sender: FDA-Public Use
  Company Number: US-NOVOPROD-906711

PATIENT
  Age: 71 Year
  Sex: Female

DRUGS (2)
  1. VICTOZA [Suspect]
     Active Substance: LIRAGLUTIDE
     Indication: Product used for unknown indication
     Dosage: 1.2 MG
     Route: 058
     Dates: start: 201910, end: 20210921
  2. VICTOZA [Suspect]
     Active Substance: LIRAGLUTIDE
     Dosage: 1.8 MG
     Route: 058
     Dates: start: 20210921, end: 20220329

REACTIONS (3)
  - Papillary thyroid cancer [Unknown]
  - Papillary thyroid cancer [Not Recovered/Not Resolved]
  - Parathyroid tumour [Unknown]

NARRATIVE: CASE EVENT DATE: 20220329
